FAERS Safety Report 4684598-4 (Version None)
Quarter: 2005Q2

REPORT INFORMATION
  Report Type: 
  Country: None (occurrence: None)
  Receive Date: 20050603
  Receipt Date: 20050504
  Transmission Date: 20051028
  Serious: Yes (Other)
  Sender: FDA-Public Use
  Company Number: 2005017220

PATIENT
  Age: 66 Year
  Sex: Female
  Weight: 49.8957 kg

DRUGS (3)
  1. ZOLOFT [Suspect]
     Indication: DEPRESSION
     Dosage: 25 MG (25 MG, 1 IN 1 D)
     Dates: start: 20041023
  2. WELLBUTRIN [Suspect]
     Indication: ILL-DEFINED DISORDER
     Dosage: ORAL
     Route: 048
     Dates: start: 20030516, end: 20050127
  3. KLONOPIN [Concomitant]

REACTIONS (10)
  - ABDOMINAL DISTENSION [None]
  - ALOPECIA [None]
  - BODY HEIGHT DECREASED [None]
  - DRY SKIN [None]
  - ERUCTATION [None]
  - FLATULENCE [None]
  - GLOSSODYNIA [None]
  - MOVEMENT DISORDER [None]
  - NERVOUS SYSTEM DISORDER [None]
  - SELF MUTILATION [None]
